FAERS Safety Report 7203550-8 (Version None)
Quarter: 2010Q4

REPORT INFORMATION
  Report Type: 
  Country: None (occurrence: None)
  Receive Date: 20101230
  Receipt Date: 20101222
  Transmission Date: 20110411
  Serious: Yes (Other)
  Sender: FDA-Public Use
  Company Number: US-ASTELLAS-2010US005240

PATIENT

DRUGS (2)
  1. VIBATIV [Suspect]
     Indication: ENDOCARDITIS STAPHYLOCOCCAL
     Dosage: 875 MG, UID/QD
     Route: 042
     Dates: start: 20101101
  2. ANTIVIRALS NOS [Concomitant]
     Indication: HIV INFECTION
     Dosage: UNK
     Route: 065

REACTIONS (2)
  - HEPATOTOXICITY [None]
  - RENAL IMPAIRMENT [None]
